FAERS Safety Report 7743206-6 (Version None)
Quarter: 2011Q3

REPORT INFORMATION
  Report Type: 
  Country: None (occurrence: None)
  Receive Date: 20110912
  Receipt Date: 20110830
  Transmission Date: 20111222
  Serious: Yes (Hospitalization, Other)
  Sender: FDA-Public Use
  Company Number: BR-ELI_LILLY_AND_COMPANY-BR201106003910

PATIENT
  Sex: Female

DRUGS (3)
  1. OMEPRAZOLE [Concomitant]
  2. CYMBALTA [Suspect]
     Dosage: 30 MG, QD
     Route: 048
     Dates: start: 20110316, end: 20110329
  3. CYMBALTA [Suspect]
     Dosage: 60 MG, QD
     Route: 048

REACTIONS (2)
  - NERVE COMPRESSION [None]
  - OFF LABEL USE [None]
